FAERS Safety Report 6384105-4 (Version None)
Quarter: 2009Q3

REPORT INFORMATION
  Report Type: 
  Country: None (occurrence: None)
  Receive Date: 20090928
  Receipt Date: 20090916
  Transmission Date: 20100115
  Serious: Yes (Hospitalization)
  Sender: FDA-Public Use
  Company Number: 230093J09BRA

PATIENT
  Age: 39 Year
  Sex: Female

DRUGS (4)
  1. REBIF [Suspect]
     Indication: RELAPSING-REMITTING MULTIPLE SCLEROSIS
     Dosage: 44 MCG, 3 IN 1 WEEKS
     Dates: start: 20030723
  2. ALPRAZOLAM [Concomitant]
  3. VENLAFAXINE HCL [Concomitant]
  4. CITALOPRAM HYDROBROMIDE [Concomitant]

REACTIONS (5)
  - CENTRAL NERVOUS SYSTEM LESION [None]
  - DYSGRAPHIA [None]
  - GAIT DISTURBANCE [None]
  - HYPOAESTHESIA [None]
  - SPEECH DISORDER [None]
